FAERS Safety Report 8759691 (Version 1)
Quarter: 2012Q4

REPORT INFORMATION
  Report Type: 
  Country: US (occurrence: US)
  Receive Date: 20120829
  Receipt Date: 20120829
  Transmission Date: 20130627
  Serious: Yes (Hospitalization)
  Sender: FDA-Public Use
  Company Number: US-VERTEX PHARMACEUTICAL INC.-2012-020190

PATIENT
  Sex: Female

DRUGS (3)
  1. INCIVEK [Suspect]
     Indication: HEPATITIS C
     Dosage: UNK
     Route: 048
  2. PEGASYS [Suspect]
     Indication: HEPATITIS C
     Dosage: UNK
  3. COPEGUS [Suspect]
     Indication: HEPATITIS C
     Dosage: UNK

REACTIONS (5)
  - Dehydration [Unknown]
  - Pyrexia [Unknown]
  - Skin ulcer [Unknown]
  - Rash [Unknown]
  - Anaemia [Unknown]
